FAERS Safety Report 17727996 (Version 1)
Quarter: 2020Q2

REPORT INFORMATION
  Report Type: Spontaneous
  Country: US (occurrence: US)
  Receive Date: 20200430
  Receipt Date: 20200430
  Transmission Date: 20200714
  Serious: Yes (Other)
  Sender: FDA-Public Use
  Company Number: US-SLATE RUN PHARMACEUTICALS-20US000002

PATIENT

DRUGS (1)
  1. AZITHROMYCIN USP [Suspect]
     Active Substance: AZITHROMYCIN
     Indication: SINUSITIS
     Route: 065

REACTIONS (1)
  - Maternal exposure during pregnancy [Unknown]
